FAERS Safety Report 7115338-7 (Version None)
Quarter: 2010Q4

REPORT INFORMATION
  Report Type: 
  Country: None (occurrence: None)
  Receive Date: 20101116
  Receipt Date: 20101116
  Transmission Date: 20110411
  Serious: Yes (Other)
  Sender: FDA-Public Use
  Company Number: None

PATIENT
  Age: 1 Day
  Sex: Male
  Weight: 93.441 kg

DRUGS (2)
  1. OXYCONTIN [Suspect]
     Indication: BACK PAIN
     Dosage: 1 2 A DAY PO
     Route: 048
     Dates: start: 20101110, end: 20101111
  2. OXYCONTIN [Suspect]
     Indication: INTERVERTEBRAL DISC PROTRUSION
     Dosage: 1 2 A DAY PO
     Route: 048
     Dates: start: 20101110, end: 20101111

REACTIONS (5)
  - INSOMNIA [None]
  - PAIN [None]
  - PRODUCT FORMULATION ISSUE [None]
  - RASH [None]
  - SKIN BURNING SENSATION [None]
